FAERS Safety Report 25815866 (Version 1)
Quarter: 2025Q3

REPORT INFORMATION
  Report Type: Spontaneous
  Country: US (occurrence: US)
  Receive Date: 20250918
  Receipt Date: 20250918
  Transmission Date: 20251021
  Serious: No
  Sender: CATALYST PHARMA
  Company Number: US-CATALYSTPHARMACEUTICALPARTNERS-US-CATA-24-01395

PATIENT
  Age: 26 Year
  Sex: Female

DRUGS (1)
  1. FYCOMPA [Suspect]
     Active Substance: PERAMPANEL
     Indication: Product used for unknown indication
     Dosage: 4 MG TABLET - 1 TABLET EVERY DAY
     Route: 048

REACTIONS (1)
  - Speech disorder [Not Recovered/Not Resolved]

NARRATIVE: CASE EVENT DATE: 20241125
